FAERS Safety Report 7659699-9 (Version None)
Quarter: 2011Q3

REPORT INFORMATION
  Report Type: 
  Country: None (occurrence: None)
  Receive Date: 20110805
  Receipt Date: 20110728
  Transmission Date: 20111222
  Serious: Yes (Hospitalization)
  Sender: FDA-Public Use
  Company Number: JP-GENZYME-THYM-1002668

PATIENT
  Age: 25 Year
  Sex: Male
  Weight: 60 kg

DRUGS (2)
  1. THYMOGLOBULIN [Suspect]
     Indication: ORGAN TRANSPLANT
     Dosage: 1.5 MG/KG, QD
     Route: 042
     Dates: start: 20110722, end: 20110724
  2. METHYLPREDNISOLONE [Concomitant]
     Indication: PRODUCT USED FOR UNKNOWN INDICATION
     Dosage: UNK
     Dates: start: 20110722, end: 20110724

REACTIONS (2)
  - PALPITATIONS [None]
  - PYREXIA [None]
